FAERS Safety Report 6245815-2 (Version None)
Quarter: 2009Q2

REPORT INFORMATION
  Report Type: 
  Country: None (occurrence: None)
  Receive Date: 20090624
  Receipt Date: 20090611
  Transmission Date: 20091009
  Serious: Yes (Other)
  Sender: FDA-Public Use
  Company Number: 236158K09USA

PATIENT
  Age: 49 Year
  Sex: Female

DRUGS (6)
  1. REBIF [Suspect]
     Indication: MULTIPLE SCLEROSIS
     Dosage: 8.8 MCG, 3 IN 7 DAYS, SUBCUTANEOUS
     Route: 058
     Dates: start: 20090519
  2. METOPROLOL (METOPROLOL /00376901/) [Concomitant]
  3. NORVASC [Concomitant]
  4. DOXEPIN (DOXEPIN   /00138001/) [Concomitant]
  5. HYDROCHLOROTHIAZIDE [Concomitant]
  6. CLONIDINE [Concomitant]

REACTIONS (3)
  - BLOOD PRESSURE INCREASED [None]
  - FALL [None]
  - TRANSIENT ISCHAEMIC ATTACK [None]
